FAERS Safety Report 11936561 (Version 2)
Quarter: 2016Q1

REPORT INFORMATION
  Report Type: Spontaneous
  Country: BR (occurrence: BR)
  Receive Date: 20160121
  Receipt Date: 20160309
  Transmission Date: 20160526
  Serious: Yes (Hospitalization, Other)
  Sender: FDA-Public Use
  Company Number: BR-PFIZER INC-2016029335

PATIENT
  Age: 57 Year
  Sex: Female
  Weight: 75 kg

DRUGS (6)
  1. FRONTAL [Suspect]
     Active Substance: ALPRAZOLAM
     Dosage: 2 MG IN THE MORNING AND 2 MG IN THE EVENING AS NEEDED
     Route: 048
  2. GARDENAL [Concomitant]
     Active Substance: PHENOBARBITAL
     Indication: SEIZURE
     Dosage: 1 TABLET PER NIGHT
     Dates: start: 201509
  3. FRONTAL [Suspect]
     Active Substance: ALPRAZOLAM
     Indication: PANIC DISORDER
     Dosage: 1 MG (UNSPECIFIED FREQUENCY)
     Route: 048
     Dates: start: 1992
  4. FRONTAL [Suspect]
     Active Substance: ALPRAZOLAM
     Dosage: 0.25 MG (UNSPECIFIED FREQUENCY)
     Route: 048
  5. FRONTAL [Suspect]
     Active Substance: ALPRAZOLAM
     Indication: DEPRESSION
     Dosage: 1.5 MG UNTILL 2 MG (UNSPECIFIED FREQUENCY)
     Route: 048
  6. FRONTAL [Suspect]
     Active Substance: ALPRAZOLAM
     Dosage: 0.5 MG (UNSPECIFIED FREQUENCY)
     Route: 048

REACTIONS (8)
  - Drug ineffective [Not Recovered/Not Resolved]
  - Electroencephalogram abnormal [Unknown]
  - Crying [Unknown]
  - Spinal column injury [Not Recovered/Not Resolved]
  - Seizure [Recovering/Resolving]
  - Intentional product use issue [Unknown]
  - Intracranial aneurysm [Not Recovered/Not Resolved]
  - Condition aggravated [Not Recovered/Not Resolved]

NARRATIVE: CASE EVENT DATE: 20150727
